FAERS Safety Report 8850496 (Version 1)
Quarter: 2012Q4

REPORT INFORMATION
  Report Type: Report from Study
  Country: FR (occurrence: FR)
  Receive Date: 20121019
  Receipt Date: 20121019
  Transmission Date: 20130627
  Serious: Yes (Death, Hospitalization)
  Sender: FDA-Public Use
  Company Number: FR-ROCHE-1145411

PATIENT
  Age: 48 Year
  Sex: Female
  Weight: 87 kg

DRUGS (6)
  1. RITUXIMAB [Suspect]
     Indication: MANTLE CELL LYMPHOMA
     Dosage: D1 cycle 1
     Route: 041
     Dates: start: 20120924
  2. RITUXIMAB [Suspect]
     Dosage: D1 Cycle 4
     Route: 041
     Dates: start: 20120816
  3. CYTARABINE [Suspect]
     Indication: MANTLE CELL LYMPHOMA
     Route: 065
     Dates: start: 20120926, end: 20120929
  4. BICNU [Suspect]
     Indication: MANTLE CELL LYMPHOMA
     Route: 065
     Dates: start: 20120925
  5. ETOPOSIDE [Suspect]
     Indication: MANTLE CELL LYMPHOMA
     Route: 065
     Dates: start: 20120926, end: 20120929
  6. ALKERAN [Suspect]
     Indication: MANTLE CELL LYMPHOMA
     Route: 065
     Dates: start: 20120930

REACTIONS (2)
  - Febrile bone marrow aplasia [Fatal]
  - Escherichia sepsis [Fatal]
